FAERS Safety Report 9022104 (Version 1)
Quarter: 2013Q1

REPORT INFORMATION
  Report Type: Spontaneous
  Country: US (occurrence: US)
  Receive Date: 20130118
  Receipt Date: 20130118
  Transmission Date: 20140127
  Serious: Yes (Death, Hospitalization, Other)
  Sender: FDA-Public Use
  Company Number: US-GLAXOSMITHKLINE-A1008026A

PATIENT
  Age: 59 Year
  Sex: Female

DRUGS (16)
  1. BENLYSTA [Suspect]
     Indication: SYSTEMIC LUPUS ERYTHEMATOSUS
     Route: 042
  2. PLAQUENIL [Concomitant]
  3. FOLIC ACID [Concomitant]
  4. METHOTREXATE [Concomitant]
  5. PREDNISONE [Concomitant]
  6. CALCIUM [Concomitant]
  7. CELLCEPT [Concomitant]
  8. HYDROCODONE/APAP [Concomitant]
  9. CELEBREX [Concomitant]
  10. CITALOPRAM [Concomitant]
  11. FOSAMAX [Concomitant]
  12. ALDACTONE [Concomitant]
  13. ALBUMIN [Concomitant]
  14. FUROSEMIDE [Concomitant]
  15. PRILOSEC [Concomitant]
  16. FLUOXETINE [Concomitant]

REACTIONS (4)
  - Death [Fatal]
  - Ascites [Unknown]
  - Intestinal obstruction [Unknown]
  - Abdominal distension [Unknown]
